FAERS Safety Report 6016058-2 (Version None)
Quarter: 2008Q4

REPORT INFORMATION
  Report Type: 
  Country: None (occurrence: None)
  Receive Date: 20081222
  Receipt Date: 20081209
  Transmission Date: 20090506
  Serious: Yes (Hospitalization)
  Sender: FDA-Public Use
  Company Number: FR-MERCK-0812FRA00041

PATIENT
  Age: 85 Year
  Sex: Male

DRUGS (5)
  1. COZAAR [Suspect]
     Indication: HYPERTENSION
     Route: 048
     Dates: start: 20080418, end: 20080529
  2. COZAAR [Suspect]
     Route: 048
     Dates: start: 20080101, end: 20080710
  3. ZETIA [Concomitant]
     Indication: DYSLIPIDAEMIA
     Route: 048
     Dates: start: 20070101, end: 20080501
  4. FLUINDIONE [Concomitant]
     Route: 048
  5. NITROGLYCERIN [Concomitant]
     Route: 061

REACTIONS (1)
  - ECZEMA [None]
